FAERS Safety Report 25289713 (Version 1)
Quarter: 2025Q2

REPORT INFORMATION
  Report Type: Spontaneous
  Country: US (occurrence: US)
  Receive Date: 20250509
  Receipt Date: 20250509
  Transmission Date: 20250716
  Serious: No
  Sender: DR REDDYS
  Company Number: None

PATIENT
  Age: 45 Year
  Sex: Female

DRUGS (1)
  1. MORPHINE [Suspect]
     Active Substance: MORPHINE
     Indication: Central pain syndrome
     Dosage: EXTENDED RELEASE

REACTIONS (3)
  - Fatigue [Recovering/Resolving]
  - Lethargy [Recovering/Resolving]
  - Cognitive disorder [Recovering/Resolving]
